FAERS Safety Report 7704104-7 (Version None)
Quarter: 2011Q3

REPORT INFORMATION
  Report Type: 
  Country: None (occurrence: None)
  Receive Date: 20110818
  Receipt Date: 20110805
  Transmission Date: 20111222
  Serious: Yes (Other)
  Sender: FDA-Public Use
  Company Number: 2011S1000257

PATIENT
  Sex: Female

DRUGS (1)
  1. INOMAX [Suspect]
     Indication: PULMONARY HYPERTENSION
     Dosage: 40 PPM;CONT;INH
     Route: 055
     Dates: start: 20110805

REACTIONS (2)
  - OXYGEN SATURATION DECREASED [None]
  - DEVICE MALFUNCTION [None]
